FAERS Safety Report 10099304 (Version 3)
Quarter: 2015Q3

REPORT INFORMATION
  Report Type: Spontaneous
  Country: US (occurrence: US)
  Receive Date: 20140423
  Receipt Date: 20150813
  Transmission Date: 20151125
  Serious: No
  Sender: FDA-Public Use
  Company Number: US-GILEAD-2013-0068532

PATIENT
  Age: 66 Year
  Sex: Female

DRUGS (5)
  1. LETAIRIS [Suspect]
     Active Substance: AMBRISENTAN
     Indication: COR PULMONALE CHRONIC
     Dosage: 10 MG, QD
     Route: 048
     Dates: start: 20091105
  2. LETAIRIS [Suspect]
     Active Substance: AMBRISENTAN
     Indication: EMBOLISM
  3. VENTAVIS [Concomitant]
     Active Substance: ILOPROST
  4. LETAIRIS [Suspect]
     Active Substance: AMBRISENTAN
     Indication: PULMONARY VASCULAR DISORDER
  5. REVATIO [Concomitant]
     Active Substance: SILDENAFIL CITRATE

REACTIONS (1)
  - Nasopharyngitis [Unknown]
